FAERS Safety Report 25493951 (Version 1)
Quarter: 2025Q2

REPORT INFORMATION
  Report Type: Spontaneous
  Country: CA (occurrence: CA)
  Receive Date: 20250630
  Receipt Date: 20250630
  Transmission Date: 20250717
  Serious: Yes (Life-Threatening, Hospitalization)
  Sender: MYLAN
  Company Number: CA-MYLANLABS-2025M1054820

PATIENT
  Age: 8 Year
  Sex: Male
  Weight: 28 kg

DRUGS (2)
  1. ISOTRETINOIN [Suspect]
     Active Substance: ISOTRETINOIN
     Indication: Atypical teratoid/rhabdoid tumour of CNS
  2. CYCLOPHOSPHAMIDE [Suspect]
     Active Substance: CYCLOPHOSPHAMIDE
     Indication: Atypical teratoid/rhabdoid tumour of CNS

REACTIONS (2)
  - Febrile neutropenia [Recovering/Resolving]
  - Viral upper respiratory tract infection [Recovering/Resolving]
